FAERS Safety Report 24845115 (Version 1)
Quarter: 2025Q1

REPORT INFORMATION
  Report Type: Spontaneous
  Country: IT (occurrence: IT)
  Receive Date: 20250115
  Receipt Date: 20250115
  Transmission Date: 20250408
  Serious: Yes (Other)
  Sender: PFIZER
  Company Number: IT-PFIZER INC-2018348411

PATIENT
  Age: 39 Year
  Sex: Male

DRUGS (1)
  1. CABERGOLINE [Suspect]
     Active Substance: CABERGOLINE
     Indication: Prolactin-producing pituitary tumour

REACTIONS (3)
  - Cerebrospinal fluid leakage [Recovered/Resolved]
  - Off label use [Unknown]
  - Off label use [Unknown]
